FAERS Safety Report 25265023 (Version 1)
Quarter: 2025Q2

REPORT INFORMATION
  Report Type: Spontaneous
  Country: CN (occurrence: CN)
  Receive Date: 20250502
  Receipt Date: 20250502
  Transmission Date: 20250717
  Serious: Yes (Other)
  Sender: MYLAN
  Company Number: CN-MYLANLABS-2025M1036876

PATIENT
  Age: 77 Year
  Sex: Female

DRUGS (16)
  1. LIPITOR [Suspect]
     Active Substance: ATORVASTATIN CALCIUM
     Indication: Chest pain
     Dosage: 20 MILLIGRAM, QD
     Dates: start: 20250410, end: 20250415
  2. LIPITOR [Suspect]
     Active Substance: ATORVASTATIN CALCIUM
     Indication: Coronary artery disease
     Dosage: 20 MILLIGRAM, QD
     Route: 048
     Dates: start: 20250410, end: 20250415
  3. LIPITOR [Suspect]
     Active Substance: ATORVASTATIN CALCIUM
     Dosage: 20 MILLIGRAM, QD
     Route: 048
     Dates: start: 20250410, end: 20250415
  4. LIPITOR [Suspect]
     Active Substance: ATORVASTATIN CALCIUM
     Dosage: 20 MILLIGRAM, QD
     Dates: start: 20250410, end: 20250415
  5. ROCEPHIN [Suspect]
     Active Substance: CEFTRIAXONE SODIUM
     Indication: Chest pain
     Dosage: 2 GRAM, QD
     Dates: start: 20250410, end: 20250415
  6. ROCEPHIN [Suspect]
     Active Substance: CEFTRIAXONE SODIUM
     Indication: Infection
     Dosage: 2 GRAM, QD
     Route: 042
     Dates: start: 20250410, end: 20250415
  7. ROCEPHIN [Suspect]
     Active Substance: CEFTRIAXONE SODIUM
     Dosage: 2 GRAM, QD
     Route: 042
     Dates: start: 20250410, end: 20250415
  8. ROCEPHIN [Suspect]
     Active Substance: CEFTRIAXONE SODIUM
     Dosage: 2 GRAM, QD
     Dates: start: 20250410, end: 20250415
  9. ASPIRIN [Concomitant]
     Active Substance: ASPIRIN
  10. ASPIRIN [Concomitant]
     Active Substance: ASPIRIN
     Route: 065
  11. ASPIRIN [Concomitant]
     Active Substance: ASPIRIN
     Route: 065
  12. ASPIRIN [Concomitant]
     Active Substance: ASPIRIN
  13. CLOPIDOGREL BISULFATE [Concomitant]
     Active Substance: CLOPIDOGREL BISULFATE
  14. CLOPIDOGREL BISULFATE [Concomitant]
     Active Substance: CLOPIDOGREL BISULFATE
     Route: 065
  15. CLOPIDOGREL BISULFATE [Concomitant]
     Active Substance: CLOPIDOGREL BISULFATE
     Route: 065
  16. CLOPIDOGREL BISULFATE [Concomitant]
     Active Substance: CLOPIDOGREL BISULFATE

REACTIONS (2)
  - Hallucination, visual [Recovering/Resolving]
  - Hallucination, auditory [Recovering/Resolving]

NARRATIVE: CASE EVENT DATE: 20250414
